FAERS Safety Report 16668179 (Version 1)
Quarter: 2019Q3

REPORT INFORMATION
  Report Type: Other
  Country: PK (occurrence: PK)
  Receive Date: 20190805
  Receipt Date: 20190805
  Transmission Date: 20191004
  Serious: Yes (Death, Other)
  Sender: FDA-Public Use
  Company Number: PK-NAVINTA LLC-000075

PATIENT
  Age: 71 Year
  Sex: Male

DRUGS (3)
  1. SOFOSBUVIR [Suspect]
     Active Substance: SOFOSBUVIR
     Indication: HEPATITIS C VIRUS TEST POSITIVE
     Dosage: DAILY
     Dates: end: 201808
  2. DACLATASVIR. [Suspect]
     Active Substance: DACLATASVIR
     Indication: HEPATITIS C VIRUS TEST POSITIVE
     Dosage: DAILY
     Dates: end: 201808
  3. RIBAVIRIN. [Suspect]
     Active Substance: RIBAVIRIN
     Indication: HEPATITIS C VIRUS TEST POSITIVE
     Dosage: TWICE DAILY
     Dates: end: 201808

REACTIONS (4)
  - Hepatotoxicity [Fatal]
  - Hepatic cirrhosis [Fatal]
  - Hepatitis C RNA increased [Unknown]
  - Ascites [Fatal]
